FAERS Safety Report 6792389-3 (Version None)
Quarter: 2010Q2

REPORT INFORMATION
  Report Type: 
  Country: None (occurrence: None)
  Receive Date: 20100624
  Receipt Date: 20080818
  Transmission Date: 20101027
  Serious: No
  Sender: FDA-Public Use
  Company Number: US-PFIZER INC-2008064080

PATIENT
  Sex: Female
  Weight: 68.04 kg

DRUGS (3)
  1. XALATAN [Suspect]
     Indication: OCULAR HYPERTENSION
     Route: 061
     Dates: start: 20080617
  2. DRUG, UNSPECIFIED [Suspect]
     Indication: DRY EYE
     Dates: start: 20080725
  3. PRILOSEC [Concomitant]

REACTIONS (1)
  - MYDRIASIS [None]
